FAERS Safety Report 5318759-8 (Version None)
Quarter: 2007Q2

REPORT INFORMATION
  Report Type: 
  Country: None (occurrence: None)
  Receive Date: 20070508
  Receipt Date: 20070426
  Transmission Date: 20071010
  Serious: Yes (Hospitalization)
  Sender: FDA-Public Use
  Company Number: CZ-SOLVAY-00207032104

PATIENT
  Age: 12924 Day
  Sex: Female

DRUGS (6)
  1. ALFENTANIL [Concomitant]
     Indication: ILL-DEFINED DISORDER
     Dosage: DAILY DOSE: 1 DOSAGE FORM
     Route: 042
     Dates: start: 20070322, end: 20070322
  2. PROGESTERONE [Suspect]
     Indication: LUTEAL PHASE DEFICIENCY
     Dosage: DAILY DOSE:  UNKNOWN
     Route: 067
     Dates: start: 20070322, end: 20070408
  3. ORG 36286 AND PLACEBO OR PUREGON AND PLACEBO [Suspect]
     Indication: OVARIAN HYPERSTIMULATION SYNDROME
     Dosage: DAILY DOSE: 150 INTERNATIONAL UNIT(S)
     Route: 058
     Dates: start: 20070313, end: 20070319
  4. PROPOFOL [Concomitant]
     Indication: ILL-DEFINED DISORDER
     Dosage: DAILY DOSE: 1 DOSAGE FORM
     Route: 042
     Dates: start: 20070322, end: 20070322
  5. GANIRELIX ACETATE INJECTION [Suspect]
     Indication: PROPHYLAXIS
     Dosage: DAILY DOSE: .25 MILLIGRAM(S)
     Route: 058
     Dates: start: 20070317, end: 20070319
  6. CHORIONIC GONADOTROPIN [Suspect]
     Indication: OVULATION INDUCTION
     Dosage: DAILY DOSE: 10000 INTERNATIONAL UNIT(S)
     Route: 058
     Dates: start: 20070320, end: 20070320

REACTIONS (1)
  - ECTOPIC PREGNANCY [None]
